FAERS Safety Report 9915834 (Version 1)
Quarter: 2014Q1

REPORT INFORMATION
  Report Type: Spontaneous
  Country: US (occurrence: None)
  Receive Date: 20140219
  Receipt Date: 20140219
  Transmission Date: 20141002
  Serious: Yes (Hospitalization, Disabling)
  Sender: FDA-Public Use
  Company Number: None

PATIENT
  Age: 87 Year
  Sex: Female
  Weight: 54.43 kg

DRUGS (9)
  1. RECLAST [Suspect]
     Indication: OSTEOPOROSIS
     Dosage: INFUSION
     Dates: start: 20140209, end: 20140209
  2. DIOVAN [Concomitant]
  3. PREDNISONE [Concomitant]
  4. BABY ASPIRIN [Concomitant]
  5. FISH OIL [Concomitant]
  6. MECLIZINE [Concomitant]
  7. VIT E [Concomitant]
  8. VITAMIN B COMPLEX [Concomitant]
  9. CITRACAL [Concomitant]

REACTIONS (8)
  - Chills [None]
  - Pyrexia [None]
  - Dizziness [None]
  - Balance disorder [None]
  - Malaise [None]
  - Gait disturbance [None]
  - Asthenia [None]
  - Hyperhidrosis [None]
